FAERS Safety Report 12451330 (Version 1)
Quarter: 2016Q2

REPORT INFORMATION
  Report Type: Spontaneous
  Country: US (occurrence: None)
  Receive Date: 20160608
  Receipt Date: 20160608
  Transmission Date: 20160815
  Serious: Yes (Death, Hospitalization)
  Sender: FDA-Public Use
  Company Number: None

PATIENT
  Age: 70 Year
  Sex: Male
  Weight: 74.5 kg

DRUGS (13)
  1. SOFOSBUVIR 400MG [Suspect]
     Active Substance: SOFOSBUVIR
     Indication: HEPATITIS C
     Route: 048
     Dates: start: 20140624, end: 20140826
  2. CARVEDILOL. [Concomitant]
     Active Substance: CARVEDILOL
  3. SIMEPREVIR 150MG [Suspect]
     Active Substance: SIMEPREVIR
     Indication: HEPATITIS C
     Route: 048
     Dates: start: 20140624, end: 20140826
  4. LOMOTIL [Concomitant]
     Active Substance: ATROPINE SULFATE\DIPHENOXYLATE HYDROCHLORIDE
  5. FUROSEMIDE. [Concomitant]
     Active Substance: FUROSEMIDE
  6. IRON [Concomitant]
     Active Substance: IRON
  7. COZAAR [Concomitant]
     Active Substance: LOSARTAN POTASSIUM
  8. CENTRUM [Concomitant]
     Active Substance: VITAMINS
  9. RIFAXIMIN [Concomitant]
     Active Substance: RIFAXIMIN
  10. SILDENAFIL. [Concomitant]
     Active Substance: SILDENAFIL
  11. LEVOTHYROXINE. [Concomitant]
     Active Substance: LEVOTHYROXINE
  12. PANTOPRAZOLE [Concomitant]
     Active Substance: PANTOPRAZOLE SODIUM
  13. PRANDING [Concomitant]

REACTIONS (7)
  - Abscess [None]
  - Pneumatosis intestinalis [None]
  - Multiple organ dysfunction syndrome [None]
  - Gallbladder necrosis [None]
  - Sepsis [None]
  - Adhesion [None]
  - Peritonitis [None]

NARRATIVE: CASE EVENT DATE: 20140815
